FAERS Safety Report 5502930-6 (Version None)
Quarter: 2007Q4

REPORT INFORMATION
  Report Type: 
  Country: None (occurrence: None)
  Receive Date: 20071031
  Receipt Date: 20071022
  Transmission Date: 20080405
  Serious: Yes (Hospitalization)
  Sender: FDA-Public Use
  Company Number: B0486630A

PATIENT
  Age: 57 Year
  Sex: Male

DRUGS (25)
  1. ALKERAN [Suspect]
     Dosage: 280MG SINGLE DOSE
     Route: 042
     Dates: start: 20070221, end: 20070221
  2. MABTHERA [Suspect]
     Dosage: 500MG CUMULATIVE DOSE
     Route: 042
     Dates: start: 20070208, end: 20070221
  3. ZEVALIN [Suspect]
     Dosage: 890MBQ SINGLE DOSE
     Route: 042
     Dates: start: 20070208, end: 20070208
  4. ETOPOSIDE [Suspect]
     Dosage: 400MG PER DAY
     Route: 042
     Dates: start: 20070217, end: 20070220
  5. CYTARABINE [Suspect]
     Dosage: 400MG TWICE PER DAY
     Route: 042
     Dates: start: 20070217, end: 20070220
  6. BICNU [Suspect]
     Dosage: 600MG SINGLE DOSE
     Route: 042
     Dates: start: 20070216, end: 20070216
  7. KEPIVANCE [Suspect]
     Dosage: 8MG PER DAY
     Route: 042
     Dates: start: 20070212, end: 20070225
  8. HEPARIN [Concomitant]
     Route: 065
     Dates: start: 20070216, end: 20070307
  9. ZOFRAN [Concomitant]
     Indication: PROPHYLAXIS OF NAUSEA AND VOMITING
     Dosage: 1AMP TWICE PER DAY
     Route: 065
  10. EMEND [Concomitant]
     Indication: PROPHYLAXIS OF NAUSEA AND VOMITING
     Route: 065
  11. TAZOCILLINE [Concomitant]
     Indication: HYPERTHERMIA
     Route: 065
     Dates: start: 20070219, end: 20070227
  12. FORTUM [Concomitant]
     Indication: HYPERTHERMIA
     Route: 065
     Dates: start: 20070227, end: 20070228
  13. CIFLOX [Concomitant]
     Indication: HYPERTHERMIA
     Route: 065
     Dates: start: 20070219, end: 20070314
  14. FLAGYL [Concomitant]
     Indication: HYPERTHERMIA
     Route: 065
     Dates: start: 20070222, end: 20070314
  15. VANCOMYCIN [Concomitant]
     Indication: HYPERTHERMIA
     Route: 065
     Dates: start: 20070225, end: 20070314
  16. CASPOFUNGIN [Concomitant]
     Indication: HYPERTHERMIA
     Route: 065
     Dates: start: 20070308, end: 20070309
  17. VORICONAZOLE [Concomitant]
     Indication: HYPERTHERMIA
     Route: 065
     Dates: start: 20070309, end: 20070311
  18. AMBISOME [Concomitant]
     Indication: HYPERTHERMIA
     Route: 065
     Dates: start: 20070312, end: 20070312
  19. ZELITREX [Concomitant]
     Indication: HYPERTHERMIA
     Route: 065
     Dates: start: 20070208, end: 20070221
  20. ZOVIRAX [Concomitant]
     Indication: HYPERTHERMIA
     Route: 065
     Dates: start: 20070222, end: 20070311
  21. BACTRIM [Concomitant]
     Indication: HYPERTHERMIA
     Route: 065
     Dates: start: 20070306, end: 20070309
  22. AMIKLIN [Concomitant]
     Indication: HYPERTHERMIA
     Route: 065
     Dates: start: 20070306, end: 20070309
  23. AUTOGRAFT OF PERIPHERAL BLOOD STEM CELLS [Concomitant]
     Indication: NON-HODGKIN'S LYMPHOMA
     Route: 042
     Dates: start: 20070222, end: 20070222
  24. GRANOCYTE [Concomitant]
     Indication: NON-HODGKIN'S LYMPHOMA
     Route: 065
     Dates: start: 20070223
  25. TIENAM [Concomitant]
     Indication: HYPERTHERMIA
     Route: 065
     Dates: start: 20070301, end: 20070314

REACTIONS (9)
  - BONE MARROW FAILURE [None]
  - CARDIAC DISORDER [None]
  - CHOLESTASIS [None]
  - HEPATOSPLENOMEGALY [None]
  - HYPERTHERMIA [None]
  - LIVER FUNCTION TEST ABNORMAL [None]
  - LUNG NEOPLASM [None]
  - OXYGEN SATURATION DECREASED [None]
  - PANCYTOPENIA [None]
